FAERS Safety Report 23241693 (Version 1)
Quarter: 2023Q4

REPORT INFORMATION
  Report Type: Spontaneous
  Country: GB (occurrence: GB)
  Receive Date: 20231129
  Receipt Date: 20231129
  Transmission Date: 20240110
  Serious: Yes (Hospitalization, Other)
  Sender: FDA-Public Use
  Company Number: GB-GLAXOSMITHKLINE-GB2023GSK165089

PATIENT

DRUGS (6)
  1. LAMOTRIGINE [Suspect]
     Active Substance: LAMOTRIGINE
     Indication: Attention deficit hyperactivity disorder
     Dosage: UNK
  2. LAMOTRIGINE [Suspect]
     Active Substance: LAMOTRIGINE
     Dosage: DOSE INCREASED
  3. ATOMOXETINE [Suspect]
     Active Substance: ATOMOXETINE
     Indication: Attention deficit hyperactivity disorder
     Dosage: UNK
  4. METHYLPHENIDATE [Concomitant]
     Active Substance: METHYLPHENIDATE
     Indication: Attention deficit hyperactivity disorder
     Dosage: UNK
  5. RISPERIDONE [Concomitant]
     Active Substance: RISPERIDONE
     Indication: Attention deficit hyperactivity disorder
     Dosage: UNK
  6. MELATONIN [Concomitant]
     Active Substance: MELATONIN
     Indication: Attention deficit hyperactivity disorder
     Dosage: UNK

REACTIONS (19)
  - Hepatic necrosis [Unknown]
  - Drug-induced liver injury [Unknown]
  - Constipation [Unknown]
  - Vomiting [Unknown]
  - Lethargy [Unknown]
  - Coagulopathy [Unknown]
  - Ascites [Unknown]
  - Oedema due to hepatic disease [Unknown]
  - Hepatic encephalopathy [Unknown]
  - Hypertension [Unknown]
  - Pupil fixed [Unknown]
  - Cholestasis [Unknown]
  - Intracranial pressure increased [Unknown]
  - Hernia [Unknown]
  - Condition aggravated [Unknown]
  - Agitation [Unknown]
  - Hepatitis [Unknown]
  - Hepatotoxicity [Unknown]
  - Hyperammonaemia [Unknown]
